FAERS Safety Report 7161699-2 (Version None)
Quarter: 2010Q4

REPORT INFORMATION
  Report Type: 
  Country: None (occurrence: None)
  Receive Date: 20101215
  Receipt Date: 20101214
  Transmission Date: 20110411
  Serious: Yes (Hospitalization)
  Sender: FDA-Public Use
  Company Number: US-ROXANE LABORATORIES, INC.-2010-RO-01686RO

PATIENT
  Sex: Male

DRUGS (6)
  1. PREDNISONE [Suspect]
     Indication: PROSTATE CANCER
     Dosage: 10 MG
     Route: 048
     Dates: start: 20100125
  2. DEXAMETHASONE [Suspect]
     Indication: PREMEDICATION
     Dosage: 8 MG
     Route: 048
     Dates: start: 20100125
  3. DASATINIB [Suspect]
     Indication: PROSTATE CANCER
     Dosage: 100 MG
     Route: 048
     Dates: start: 20100125
  4. PLACEBO [Suspect]
     Indication: PROSTATE CANCER
     Route: 048
     Dates: start: 20100125
  5. DOCETAXEL [Suspect]
     Indication: PROSTATE CANCER
     Route: 042
  6. DOCETAXEL [Suspect]
     Route: 042
     Dates: start: 20100419, end: 20100419

REACTIONS (3)
  - DEHYDRATION [None]
  - FAILURE TO THRIVE [None]
  - HYPOTENSION [None]
